FAERS Safety Report 6386285-3 (Version None)
Quarter: 2009Q4

REPORT INFORMATION
  Report Type: 
  Country: None (occurrence: None)
  Receive Date: 20091002
  Receipt Date: 20090929
  Transmission Date: 20100525
  Serious: Yes (Life-Threatening, Congenital Anomaly)
  Sender: FDA-Public Use
  Company Number: GB-JNJFOC-20090908765

PATIENT

DRUGS (3)
  1. PREZISTA [Suspect]
     Indication: DRUG EXPOSURE DURING PREGNANCY
  2. RITONAVIR [Suspect]
     Indication: DRUG EXPOSURE DURING PREGNANCY
     Route: 015
  3. RALTEGRAVIR [Suspect]
     Indication: DRUG EXPOSURE DURING PREGNANCY
     Route: 015

REACTIONS (1)
  - CONGENITAL ANOMALY [None]
